FAERS Safety Report 19320850 (Version 1)
Quarter: 2021Q2

REPORT INFORMATION
  Report Type: Spontaneous
  Country: SG (occurrence: SG)
  Receive Date: 20210527
  Receipt Date: 20210527
  Transmission Date: 20210717
  Serious: Yes (Other)
  Sender: FDA-Public Use
  Company Number: SG-PRINSTON PHARMACEUTICAL INC.-2021PRN00178

PATIENT
  Age: 53 Year
  Sex: Female

DRUGS (9)
  1. MULTIVITAMIN [Concomitant]
     Active Substance: VITAMINS
     Route: 065
  2. PHENTERMINE HYDROCHLORIDE. [Suspect]
     Active Substance: PHENTERMINE HYDROCHLORIDE
     Indication: WEIGHT INCREASED
     Dosage: 15 MG, 1X/DAY
     Route: 065
     Dates: start: 2020
  3. PHENTERMINE HYDROCHLORIDE. [Suspect]
     Active Substance: PHENTERMINE HYDROCHLORIDE
     Dosage: 30 MG, 1X/DAY
     Route: 065
     Dates: start: 2020
  4. TOPIRAMATE. [Concomitant]
     Active Substance: TOPIRAMATE
     Indication: WEIGHT INCREASED
     Dosage: 25 MG, 1X/DAY
     Route: 065
     Dates: start: 2020
  5. ATENOLOL. [Concomitant]
     Active Substance: ATENOLOL
     Dosage: 50 UNK
     Route: 065
     Dates: start: 202007
  6. TOPIRAMATE. [Concomitant]
     Active Substance: TOPIRAMATE
     Dosage: 50 MG, 1X/DAY
     Route: 065
     Dates: start: 202007
  7. TOPIRAMATE. [Concomitant]
     Active Substance: TOPIRAMATE
     Dosage: 25 MG, 1X/DAY
     Route: 065
     Dates: start: 202010
  8. ATENOLOL. [Concomitant]
     Active Substance: ATENOLOL
     Dosage: 25 MG
     Route: 065
  9. ATORVASTATIN [Concomitant]
     Active Substance: ATORVASTATIN
     Route: 065

REACTIONS (2)
  - Acute kidney injury [Recovered/Resolved]
  - Hypertension [Recovering/Resolving]
